FAERS Safety Report 21273401 (Version 2)
Quarter: 2022Q3

REPORT INFORMATION
  Report Type: Report from Study
  Country: MX (occurrence: MX)
  Receive Date: 20220831
  Receipt Date: 20220924
  Transmission Date: 20221027
  Serious: Yes (Other)
  Sender: FDA-Public Use
  Company Number: MX-NOVARTISPH-NVSC2022MX195608

PATIENT
  Sex: Female
  Weight: 63 kg

DRUGS (1)
  1. TASIGNA [Suspect]
     Active Substance: NILOTINIB
     Indication: Chronic myeloid leukaemia
     Dosage: UNK
     Route: 048
     Dates: start: 2016

REACTIONS (12)
  - Platelet count decreased [Not Recovered/Not Resolved]
  - Lip dry [Unknown]
  - Decreased activity [Unknown]
  - Body height decreased [Unknown]
  - Gait disturbance [Unknown]
  - Sedation [Unknown]
  - Bone disorder [Unknown]
  - Bone contusion [Unknown]
  - Pain [Unknown]
  - Dehydration [Unknown]
  - Electrolyte imbalance [Unknown]
  - Back pain [Unknown]
